FAERS Safety Report 6666594-0 (Version None)
Quarter: 2010Q2

REPORT INFORMATION
  Report Type: 
  Country: None (occurrence: None)
  Receive Date: 20100404
  Receipt Date: 20090804
  Transmission Date: 20101027
  Serious: No
  Sender: FDA-Public Use
  Company Number: US-ALLERGAN-0910836US

PATIENT
  Sex: Female

DRUGS (3)
  1. ZYMAR [Suspect]
     Indication: PROPHYLAXIS
     Dosage: 1 GTT, QID
     Route: 047
  2. ZYMAR [Suspect]
     Indication: POSTOPERATIVE CARE
  3. LUCENTIS [Concomitant]
     Indication: MACULAR DEGENERATION
     Dosage: UNK, SINGLE
     Route: 031

REACTIONS (6)
  - CORNEAL ABRASION [None]
  - ERYTHEMA OF EYELID [None]
  - EYELID OEDEMA [None]
  - LACRIMATION INCREASED [None]
  - OCULAR DISCOMFORT [None]
  - OCULAR HYPERAEMIA [None]
